FAERS Safety Report 5065644-5 (Version None)
Quarter: 2006Q3

REPORT INFORMATION
  Report Type: 
  Country: None (occurrence: None)
  Receive Date: 20060726
  Receipt Date: 20060711
  Transmission Date: 20061208
  Serious: Yes (Hospitalization)
  Sender: FDA-Public Use
  Company Number: 163-21880-06070660

PATIENT
  Age: 86 Year
  Sex: Male

DRUGS (2)
  1. REVLIMID [Suspect]
     Indication: MYELODYSPLASTIC SYNDROME
     Dosage: 5 MG, DAILY, ORAL; 10 MG, DAILY, ORAL
     Route: 048
     Dates: start: 20060518, end: 20060615
  2. REVLIMID [Suspect]
     Indication: MYELODYSPLASTIC SYNDROME
     Dosage: 5 MG, DAILY, ORAL; 10 MG, DAILY, ORAL
     Route: 048
     Dates: start: 20060616, end: 20060710

REACTIONS (4)
  - CARDIAC DISORDER [None]
  - DECREASED APPETITE [None]
  - DEPRESSION [None]
  - FLUID INTAKE REDUCED [None]
